FAERS Safety Report 7490122-3 (Version None)
Quarter: 2011Q2

REPORT INFORMATION
  Report Type: 
  Country: None (occurrence: None)
  Receive Date: 20110519
  Receipt Date: 20110516
  Transmission Date: 20111010
  Serious: Yes (Other)
  Sender: FDA-Public Use
  Company Number: US-PFIZER INC-2011104805

PATIENT
  Age: 21 Year
  Sex: Female
  Weight: 56.689 kg

DRUGS (2)
  1. SERTRALINE HYDROCHLORIDE [Suspect]
     Indication: DEPRESSION
     Dosage: 25 MG, 1X/DAY
     Route: 048
     Dates: start: 20110301, end: 20110101
  2. VITAMIN D [Concomitant]
     Dosage: UNK

REACTIONS (1)
  - SEROTONIN SYNDROME [None]
